FAERS Safety Report 23711632 (Version 1)
Quarter: 2024Q2

REPORT INFORMATION
  Report Type: Spontaneous
  Country: FR (occurrence: FR)
  Receive Date: 20240405
  Receipt Date: 20240405
  Transmission Date: 20240716
  Serious: Yes (Other)
  Sender: FDA-Public Use
  Company Number: FR-QUAGEN-2024QUALIT00075

PATIENT
  Age: 53 Year
  Sex: Male

DRUGS (11)
  1. TRIAMCINOLONE ACETONIDE [Suspect]
     Active Substance: TRIAMCINOLONE ACETONIDE
     Indication: Immune recovery uveitis
     Route: 057
  2. OZURDEX [Suspect]
     Active Substance: DEXAMETHASONE
     Indication: Immune recovery uveitis
     Route: 050
  3. METHYLPREDNISOLONE [Suspect]
     Active Substance: METHYLPREDNISOLONE
     Indication: Immune recovery uveitis
     Route: 042
  4. BETAMETHASONE [Suspect]
     Active Substance: BETAMETHASONE\BETAMETHASONE DIPROPIONATE
     Indication: Uveitis
     Route: 057
  5. PREDNISONE [Suspect]
     Active Substance: PREDNISONE
     Indication: Immune recovery uveitis
     Route: 048
  6. ETANERCEPT [Concomitant]
     Active Substance: ETANERCEPT
     Route: 065
  7. ADALIMUMAB [Concomitant]
     Active Substance: ADALIMUMAB\ISOPROPYL ALCOHOL
     Route: 065
  8. INFLIXIMAB [Concomitant]
     Active Substance: INFLIXIMAB
     Route: 042
  9. CEFTRIAXONE [Concomitant]
     Active Substance: CEFTRIAXONE\CEFTRIAXONE SODIUM
     Indication: Whipple^s disease
     Route: 042
  10. DOXYCYCLINE [Concomitant]
     Active Substance: DOXYCYCLINE
     Indication: Whipple^s disease
     Route: 065
  11. HYDROXYCHLOROQUINE [Concomitant]
     Active Substance: HYDROXYCHLOROQUINE
     Indication: Whipple^s disease
     Route: 065

REACTIONS (4)
  - Cataract [Unknown]
  - Intraocular pressure increased [Unknown]
  - Product use in unapproved indication [Unknown]
  - Product use issue [Unknown]
